FAERS Safety Report 9678584 (Version 1)
Quarter: 2013Q4

REPORT INFORMATION
  Report Type: Spontaneous
  Country: US (occurrence: US)
  Receive Date: 20131108
  Receipt Date: 20131108
  Transmission Date: 20140711
  Serious: No
  Sender: FDA-Public Use
  Company Number: US-BAXTER-2013BAX043510

PATIENT
  Age: 67 Year
  Sex: Female

DRUGS (7)
  1. DIANEAL LOW CALCIUM [Suspect]
     Indication: RENAL FAILURE CHRONIC
     Dosage: 1 BAG
     Route: 033
     Dates: start: 200812
  2. DIANEAL LOW CALCIUM [Suspect]
     Dosage: 2 BAGS
     Route: 033
     Dates: start: 20131024
  3. DIANEAL LOW CALCIUM [Suspect]
     Indication: RENAL FAILURE CHRONIC
     Dosage: 2 BAGS
     Route: 033
     Dates: start: 200812
  4. DIANEAL LOW CALCIUM [Suspect]
     Dosage: 1 BAG
     Route: 033
     Dates: start: 20131024
  5. NORVASC [Suspect]
     Indication: HYPERTENSION
     Route: 048
     Dates: end: 20131026
  6. COREG [Suspect]
     Indication: HYPERTENSION
     Route: 048
     Dates: end: 20131026
  7. CLONIDINE [Suspect]
     Indication: HYPERTENSION
     Route: 048
     Dates: end: 20131026

REACTIONS (1)
  - Hypotension [Recovered/Resolved]
